FAERS Safety Report 8535516-X (Version None)
Quarter: 2012Q3

REPORT INFORMATION
  Report Type: 
  Country: None (occurrence: None)
  Receive Date: 20120718
  Receipt Date: 20120718
  Transmission Date: 20120928
  Serious: Yes (Life-Threatening, Hospitalization)
  Sender: FDA-Public Use
  Company Number: None

PATIENT
  Age: 78 Year
  Sex: Female
  Weight: 73 kg

DRUGS (2)
  1. XARELTO [Suspect]
     Indication: ATRIAL FIBRILLATION
     Dosage: 20 MG DAILY PO   1-2 MONTHS?
     Route: 048
  2. ASPIRIN [Concomitant]

REACTIONS (1)
  - DUODENAL ULCER HAEMORRHAGE [None]
